FAERS Safety Report 4965227-9 (Version None)
Quarter: 2006Q1

REPORT INFORMATION
  Report Type: 
  Country: None (occurrence: None)
  Receive Date: 20060201
  Receipt Date: 20051214
  Transmission Date: 20060701
  Serious: No
  Sender: FDA-Public Use
  Company Number: FACT0500731

PATIENT
  Age: 35 Year
  Sex: Female
  Weight: 104.8 kg

DRUGS (3)
  1. FACTIVE [Suspect]
     Indication: RESPIRATORY TRACT INFECTION BACTERIAL
     Dosage: 320MG QD ORAL
     Route: 048
     Dates: start: 20051206, end: 20051207
  2. TUSSIONEX [Suspect]
     Indication: COUGH
     Dosage: 1 UNK Q 12HR UNK
     Dates: start: 20051206
  3. ALLEGRA-D (FEXOFENADINE HYDROCHLORIDE, PSEUDOEPHEDRINE HYDROCHLORIDE) [Suspect]
     Indication: SINUS OPERATION
     Dosage: Q12HR
     Dates: start: 20051206

REACTIONS (1)
  - RASH PRURITIC [None]
